FAERS Safety Report 11790132 (Version 1)
Quarter: 2015Q4

REPORT INFORMATION
  Report Type: Spontaneous
  Country: US (occurrence: None)
  Receive Date: 20151130
  Receipt Date: 20151130
  Transmission Date: 20160305
  Serious: Yes (Other)
  Sender: FDA-Public Use
  Company Number: None

PATIENT
  Age: 52 Year
  Sex: Female

DRUGS (1)
  1. HUMIRA [Suspect]
     Active Substance: ADALIMUMAB
     Indication: RHEUMATOID ARTHRITIS
     Route: 058
     Dates: start: 20150623, end: 20151006

REACTIONS (7)
  - Dyspnoea [None]
  - Haemoptysis [None]
  - Skin infection [None]
  - Staphylococcal infection [None]
  - Skin ulcer [None]
  - Oedema [None]
  - Breast ulceration [None]

NARRATIVE: CASE EVENT DATE: 20151001
